FAERS Safety Report 9891866 (Version 2)
Quarter: 2014Q1

REPORT INFORMATION
  Report Type: Spontaneous
  Country: US (occurrence: None)
  Receive Date: 20140210
  Receipt Date: 20140226
  Transmission Date: 20141002
  Serious: Yes (Other)
  Sender: FDA-Public Use
  Company Number: AUR-APL-2014-01315

PATIENT
  Age: 66 Year
  Sex: Female

DRUGS (16)
  1. FLUCONAZOLE [Suspect]
     Indication: PRODUCT USED FOR UNKNOWN INDICATION
     Dosage: 1 D
     Route: 048
  2. FLUCONAZOLE [Suspect]
     Indication: SUPERINFECTION FUNGAL
     Dosage: 1 D
     Route: 048
  3. METHOTREXATE(METHOTREXATE) [Concomitant]
  4. PREDNISONE(PREDNISONE)(PREDNISONE) [Concomitant]
  5. FUROSEMIDE(FUROSEMIDE) [Concomitant]
  6. ALPRAZOLAM(ALPRAZOLAM) (ALPRAZOLAM) [Concomitant]
  7. CARISOPRODOL(CARISOPRODOL) [Concomitant]
  8. FOLIC ACID(FOLIC ACID) [Concomitant]
  9. CONJUGATED ESTROGENS(ESTROGENS CONJUGATED) [Concomitant]
  10. TIOTROPIUM(TIOTROPIUM) [Concomitant]
  11. OMEPRAZOLE(OMEPRAZOLE) [Concomitant]
  12. SUMATRIPTAN(SUMATRIPTAN) [Concomitant]
  13. ACETAMINOPHEN W/HYDROCODONE(PROCET /01554201/) [Concomitant]
  14. VANCOMYCIN(VANCOMYCIN) [Concomitant]
  15. AZTREONAM(AZTREONAM) [Concomitant]
  16. TIGECYCLINE(TIGECYCLINE) [Concomitant]

REACTIONS (18)
  - Agranulocytosis [None]
  - Thrombocytopenia [None]
  - Bone marrow failure [None]
  - Pulmonary oedema [None]
  - Pneumonia [None]
  - Pain in extremity [None]
  - Arthralgia [None]
  - Condition aggravated [None]
  - Muscular weakness [None]
  - Oedema [None]
  - Hyperaesthesia [None]
  - Skin ulcer [None]
  - Erythema [None]
  - Heart rate increased [None]
  - Renal failure acute [None]
  - Hip fracture [None]
  - General physical health deterioration [None]
  - Enterobacter test positive [None]
